FAERS Safety Report 19704549 (Version 4)
Quarter: 2021Q4

REPORT INFORMATION
  Report Type: Report from Study
  Country: GB (occurrence: GB)
  Receive Date: 20210816
  Receipt Date: 20211207
  Transmission Date: 20220303
  Serious: Yes (Hospitalization, Other)
  Sender: FDA-Public Use
  Company Number: GB-SA-SAC20210812000171

PATIENT
  Age: 75 Year
  Sex: Female

DRUGS (7)
  1. DUPILUMAB [Suspect]
     Active Substance: DUPILUMAB
     Indication: Dermatitis atopic
     Dosage: 600 MG, 1X
     Route: 058
     Dates: start: 20210728, end: 20210728
  2. DUPILUMAB [Suspect]
     Active Substance: DUPILUMAB
     Indication: Eczema
  3. CARBOCYSTEINE [Concomitant]
     Active Substance: CARBOCYSTEINE
     Indication: Chronic obstructive pulmonary disease
     Dosage: 375 MG, TID
     Route: 048
     Dates: start: 2021
  4. DOXAZOSIN MESYLATE [Concomitant]
     Active Substance: DOXAZOSIN MESYLATE
     Indication: Hypertension
     Dosage: 8 MG
     Route: 048
     Dates: start: 2021
  5. CETIRIZINE [Concomitant]
     Active Substance: CETIRIZINE HYDROCHLORIDE
     Indication: Hypertension
     Dosage: 8 MG, QD
     Route: 048
     Dates: start: 2021
  6. CHOLECALCIFEROL [Concomitant]
     Active Substance: CHOLECALCIFEROL
     Indication: Osteoporosis
     Dosage: UNK, QD
     Route: 048
     Dates: start: 2021
  7. AZATHIOPRINE [Concomitant]
     Active Substance: AZATHIOPRINE
     Dosage: UNK

REACTIONS (10)
  - Deep vein thrombosis [Recovered/Resolved]
  - Adrenal suppression [Recovered/Resolved]
  - Dermatitis exfoliative generalised [Recovered/Resolved]
  - Chronic obstructive pulmonary disease [Recovered/Resolved]
  - Skin exfoliation [Recovered/Resolved]
  - Dyspnoea [Unknown]
  - Erythema [Recovered/Resolved]
  - Eczema [Recovered/Resolved]
  - Chills [Recovered/Resolved]
  - Rash [Unknown]

NARRATIVE: CASE EVENT DATE: 20210729
